FAERS Safety Report 10255595 (Version 1)
Quarter: 2014Q2

REPORT INFORMATION
  Report Type: Spontaneous
  Country: GB (occurrence: None)
  Receive Date: 20140620
  Receipt Date: 20140620
  Transmission Date: 20141212
  Serious: Yes (Other)
  Sender: FDA-Public Use
  Company Number: AUR-APL-2014-06444

PATIENT
  Age: 55 Year
  Sex: Female
  Weight: 76 kg

DRUGS (7)
  1. MIRTAZAPINE [Suspect]
     Indication: DEPRESSION
     Route: 048
     Dates: start: 20140130, end: 20140213
  2. BENDROFLUMETHIAZIDE (BENDROFLUMETHIAZIDE) [Concomitant]
  3. DIAZEPAM (DIAZEPAM) [Concomitant]
  4. PAROXETINE HYDROCHLORIDE (PAROXETINE HYDROCHLORIDE) [Concomitant]
  5. RAMIPRIL (RAMIPRIL) [Concomitant]
  6. SERETIDE (FLUTICASONE PROPIONATE, SALMETEROL XINAFOATE) [Concomitant]
  7. VENTOLIN (SALBUTAMOL) [Concomitant]

REACTIONS (3)
  - Tachycardia [None]
  - Palpitations [None]
  - Dyspnoea exertional [None]
